FAERS Safety Report 16522415 (Version 1)
Quarter: 2019Q3

REPORT INFORMATION
  Report Type: Spontaneous
  Country: US (occurrence: US)
  Receive Date: 20190703
  Receipt Date: 20190703
  Transmission Date: 20191004
  Serious: No
  Sender: FDA-Public Use
  Company Number: US-PFIZER INC-2016383645

PATIENT
  Age: 71 Year
  Sex: Female

DRUGS (14)
  1. MORPHINE SULF [Concomitant]
     Active Substance: MORPHINE SULFATE
     Dosage: 45 MG, DAILY (3 PER DAY, EVERY MONTH)
  2. LYRICA [Suspect]
     Active Substance: PREGABALIN
     Indication: SACROILIITIS
     Dosage: 150 MG, 1X/DAY (TAKE 1 CAP BY MOUTH NIGHTLY)
     Route: 048
  3. LYRICA [Suspect]
     Active Substance: PREGABALIN
     Indication: FIBROMYALGIA
  4. ACETAMINOPHEN W/HYDROCODONE [Concomitant]
     Active Substance: ACETAMINOPHEN\HYDROCODONE
     Dosage: 1 DF, 1X/DAY (HYDROCODONE: 7.5MG; PARACETAMOL: 325MG) 6 TIMES PER YEAR
  5. LYRICA [Suspect]
     Active Substance: PREGABALIN
     Indication: BACK PAIN
  6. LYRICA [Suspect]
     Active Substance: PREGABALIN
     Indication: PAIN
  7. MAXALT [Concomitant]
     Active Substance: RIZATRIPTAN BENZOATE
     Dosage: 30 MG, WEEKLY (10MG 3 PER WEEK, FOUR TIMES PER YEAR)
  8. ATORVASTATIN [Concomitant]
     Active Substance: ATORVASTATIN
     Dosage: 20 MG, DAILY (1 PER DAY, FOUR TIMES PER YEAR)
  9. ALPRAZOLAM. [Concomitant]
     Active Substance: ALPRAZOLAM
     Dosage: UNK UNK, 1X/DAY (0.25 MG; 1/2 PER DAY AT HS, 2 TIMES PER YEAR)
  10. EPIPEN [Concomitant]
     Active Substance: EPINEPHRINE
     Dosage: UNK (0.3MG/0.3ML (1:1000) INJECTION; 2 PER MONTH, ONE TIME PER YEAR)
  11. PROVENTIL HFA [Concomitant]
     Active Substance: ALBUTEROL SULFATE
     Dosage: UNK (90 MCG/ACTUATION; 4 TIMES PER DAY)
     Route: 055
  12. MONTELUKAST SODIUM. [Concomitant]
     Active Substance: MONTELUKAST SODIUM
     Dosage: 10 MG, 1X/DAY (1 PER DAY, FOUR TIMES A YEAR)
  13. BUSPIRONE HCL [Concomitant]
     Active Substance: BUSPIRONE HYDROCHLORIDE
     Dosage: 5 MG, DAILY (1 PER DAY, TWO TIMES PER YEAR)
  14. MORPHINE SULFATE. [Concomitant]
     Active Substance: MORPHINE SULFATE
     Dosage: 60 MG, DAILY (30MG; 2 PER DAY, EVERY MONTH)

REACTIONS (2)
  - Anxiety [Unknown]
  - Depression [Unknown]
